FAERS Safety Report 7182798-5 (Version None)
Quarter: 2010Q4

REPORT INFORMATION
  Report Type: 
  Country: None (occurrence: None)
  Receive Date: 20101221
  Receipt Date: 20101214
  Transmission Date: 20110411
  Serious: Yes (Other)
  Sender: FDA-Public Use
  Company Number: DE-AMGEN-DEUSP2010009747

PATIENT

DRUGS (4)
  1. ENBREL FERTIGSPRITZE [Suspect]
     Indication: RHEUMATOID ARTHRITIS
     Dosage: 50 MG EVER 10 DAYS
     Dates: start: 20070912
  2. ENBREL FERTIGSPRITZE [Suspect]
     Indication: PRODUCT USED FOR UNKNOWN INDICATION
  3. METHOTREXATE [Concomitant]
     Dosage: 25 MG, WEEKLY
     Route: 058
  4. GLUCOCORTICOIDS [Concomitant]
     Dosage: 4 MG, UNK

REACTIONS (1)
  - RHEUMATOID ARTHRITIS [None]
